FAERS Safety Report 10661642 (Version 2)
Quarter: 2015Q1

REPORT INFORMATION
  Report Type: Spontaneous
  Country: TR (occurrence: TR)
  Receive Date: 20141218
  Receipt Date: 20150106
  Transmission Date: 20150720
  Serious: Yes (Other)
  Sender: FDA-Public Use
  Company Number: TR-PFIZER INC-2014347006

PATIENT
  Sex: Male

DRUGS (2)
  1. FLOMAX [Concomitant]
     Active Substance: TAMSULOSIN HYDROCHLORIDE
  2. DETRUSITOL [Suspect]
     Active Substance: TOLTERODINE TARTRATE

REACTIONS (2)
  - Benign prostatic hyperplasia [Unknown]
  - Pollakiuria [Unknown]
